FAERS Safety Report 9647980 (Version 2)
Quarter: 2014Q2

REPORT INFORMATION
  Report Type: Spontaneous
  Country: US (occurrence: US)
  Receive Date: 20131028
  Receipt Date: 20140421
  Transmission Date: 20141212
  Serious: No
  Sender: FDA-Public Use
  Company Number: US-PFIZER INC-2013304638

PATIENT
  Age: 50 Year
  Sex: Female
  Weight: 90.7 kg

DRUGS (5)
  1. LYRICA [Suspect]
     Indication: PERIPHERAL VASCULAR DISORDER
     Dosage: 150 MG, 2X/DAY
     Dates: end: 201311
  2. LYRICA [Suspect]
     Indication: DIABETIC NEUROPATHY
  3. LYRICA [Suspect]
     Indication: FIBROMYALGIA
  4. LOSARTAN [Concomitant]
     Indication: BLOOD PRESSURE ABNORMAL
     Dosage: UNK
  5. SIMVASTATIN [Concomitant]
     Indication: BLOOD CHOLESTEROL ABNORMAL
     Dosage: UNK

REACTIONS (1)
  - Pain [Not Recovered/Not Resolved]
